FAERS Safety Report 5672569-0 (Version None)
Quarter: 2008Q1

REPORT INFORMATION
  Report Type: 
  Country: None (occurrence: None)
  Receive Date: 20080319
  Receipt Date: 20080312
  Transmission Date: 20080703
  Serious: Yes (Other)
  Sender: FDA-Public Use
  Company Number: PHFR2008GB01111

PATIENT
  Age: 63 Year
  Sex: Male

DRUGS (4)
  1. GLEEVEC [Suspect]
     Dosage: 400 MG/DAY
     Route: 065
  2. GLEEVEC [Suspect]
     Dosage: 600 MG/DAY
     Route: 065
  3. DASATINIB [Suspect]
     Dosage: 70 MG/DAY
     Route: 065
  4. DASATINIB [Suspect]
     Dosage: 140 MG/DAY
     Route: 065

REACTIONS (7)
  - ANGINA PECTORIS [None]
  - CHEST PAIN [None]
  - CORONARY ARTERY BYPASS [None]
  - CORONARY ARTERY STENOSIS [None]
  - NEUTROPENIA [None]
  - NO THERAPEUTIC RESPONSE [None]
  - PALPITATIONS [None]
